FAERS Safety Report 13400015 (Version 2)
Quarter: 2017Q2

REPORT INFORMATION
  Report Type: Spontaneous
  Country: US (occurrence: US)
  Receive Date: 20170404
  Receipt Date: 20170504
  Transmission Date: 20170830
  Serious: Yes (Other)
  Sender: FDA-Public Use
  Company Number: US-SUN PHARMACEUTICAL INDUSTRIES LTD-2016US-130228

PATIENT
  Sex: Male

DRUGS (3)
  1. PREDNISONE. [Suspect]
     Active Substance: PREDNISONE
     Indication: IMMUNOSUPPRESSION
     Dosage: 5 MG, DAILY
     Route: 065
  2. TACROLIMUS. [Suspect]
     Active Substance: TACROLIMUS
     Indication: IMMUNOSUPPRESSION
     Dosage: DOSE: TARGET TROUGH DRUG LEVEL OF 6 NG/ML
     Route: 065
  3. MYCOPHENOLATE [Suspect]
     Active Substance: MYCOPHENOLIC ACID
     Indication: IMMUNOSUPPRESSION
     Dosage: 1 G, BID
     Route: 065

REACTIONS (4)
  - Cytomegalovirus viraemia [Recovered/Resolved]
  - Neurotoxicity [Unknown]
  - Transplant rejection [Unknown]
  - Nephropathy toxic [Recovering/Resolving]
